FAERS Safety Report 5662715-7 (Version None)
Quarter: 2008Q1

REPORT INFORMATION
  Report Type: 
  Country: None (occurrence: None)
  Receive Date: 20080313
  Receipt Date: 20080229
  Transmission Date: 20080703
  Serious: Yes (Hospitalization)
  Sender: FDA-Public Use
  Company Number: US-KINGPHARMUSA00001-K200800263

PATIENT

DRUGS (1)
  1. ALTACE [Suspect]
     Indication: HYPERTENSION
     Dosage: 3.75 DF, QD
     Route: 048
     Dates: start: 20070714, end: 20070813

REACTIONS (6)
  - BENIGN PROSTATIC HYPERPLASIA [None]
  - ESCHERICHIA URINARY TRACT INFECTION [None]
  - HAEMATURIA [None]
  - HYPONATRAEMIA [None]
  - RENAL FAILURE ACUTE [None]
  - URINARY RETENTION [None]
